FAERS Safety Report 14606638 (Version 1)
Quarter: 2018Q1

REPORT INFORMATION
  Report Type: Spontaneous
  Country: US (occurrence: US)
  Receive Date: 20180307
  Receipt Date: 20180307
  Transmission Date: 20180509
  Serious: No
  Sender: FDA-Public Use
  Company Number: US-TEVA-766114ACC

PATIENT
  Sex: Female
  Weight: 117.93 kg

DRUGS (17)
  1. TRAMADOL. [Concomitant]
     Active Substance: TRAMADOL
     Indication: DIABETIC NEUROPATHY
     Dosage: 150 MILLIGRAM DAILY;
     Route: 048
     Dates: start: 201702
  2. GABAPENTIN. [Suspect]
     Active Substance: GABAPENTIN
     Indication: NERVE INJURY
     Dosage: 2400 MILLIGRAM DAILY; START DATE: 2007 OR 2008
     Route: 048
  3. METHADONE [Concomitant]
     Active Substance: METHADONE HYDROCHLORIDE
  4. SPIRONOLACTONE. [Concomitant]
     Active Substance: SPIRONOLACTONE
  5. LYRICA [Suspect]
     Active Substance: PREGABALIN
     Indication: DIABETIC NEUROPATHY
     Dosage: 450 MILLIGRAM DAILY;
     Route: 048
     Dates: start: 201702, end: 20170412
  6. METHYLPREDNISOLONE. [Concomitant]
     Active Substance: METHYLPREDNISOLONE
  7. IBUPROFEN. [Concomitant]
     Active Substance: IBUPROFEN
  8. FUROSEMIDE. [Concomitant]
     Active Substance: FUROSEMIDE
  9. ERYTHROMYCIN. [Concomitant]
     Active Substance: ERYTHROMYCIN
  10. PRAMIPEXOLE. [Concomitant]
     Active Substance: PRAMIPEXOLE
  11. CITALOPRAM [Concomitant]
     Active Substance: CITALOPRAM HYDROBROMIDE
  12. SIMVASTATIN. [Concomitant]
     Active Substance: SIMVASTATIN
  13. MUPIROCIN. [Concomitant]
     Active Substance: MUPIROCIN
  14. TRAZODONE [Concomitant]
     Active Substance: TRAZODONE HYDROCHLORIDE
  15. LYRICA [Suspect]
     Active Substance: PREGABALIN
     Indication: NERVE INJURY
  16. METFORMIN [Concomitant]
     Active Substance: METFORMIN HYDROCHLORIDE
  17. POTASSIUM [Concomitant]
     Active Substance: POTASSIUM

REACTIONS (6)
  - Pain [Unknown]
  - Disturbance in attention [Unknown]
  - Abnormal behaviour [Unknown]
  - Speech disorder [Unknown]
  - Thinking abnormal [Unknown]
  - Confusional state [Unknown]
